FAERS Safety Report 10451767 (Version 3)
Quarter: 2014Q3

REPORT INFORMATION
  Report Type: Report from Study
  Country: MX (occurrence: MX)
  Receive Date: 20140915
  Receipt Date: 20140929
  Transmission Date: 20150326
  Serious: Yes (Other)
  Sender: FDA-Public Use
  Company Number: MX-ORION CORPORATION ORION PHARMA-ENTC2013-0422

PATIENT
  Age: 72 Year
  Sex: Female
  Weight: 41.4 kg

DRUGS (7)
  1. STALEVO [Suspect]
     Active Substance: CARBIDOPA\ENTACAPONE\LEVODOPA
     Indication: PARKINSON^S DISEASE
     Dosage: STRENGTH: 200/50/200 MG
     Route: 065
     Dates: start: 2012, end: 2013
  2. SERMION [Concomitant]
     Active Substance: NICERGOLINE
     Dosage: DOSE OF 1, BEFORE SLEEP
     Route: 065
     Dates: start: 20130919
  3. STALEVO [Suspect]
     Active Substance: CARBIDOPA\ENTACAPONE\LEVODOPA
     Dosage: STRENGTH: 150/37.5/200 MG
     Route: 048
     Dates: start: 20140829, end: 20140903
  4. PARAMIX [Concomitant]
     Route: 065
     Dates: start: 20131011, end: 20131016
  5. ENSURE [Concomitant]
     Active Substance: AMINO ACIDS\DEXTROSE\ELECTROLYTES NOS\SOYBEAN OIL\VITAMINS
     Indication: VITAMIN SUPPLEMENTATION
     Route: 065
     Dates: start: 20130919
  6. ZYPREXA ZIDIS [Concomitant]
     Indication: ANXIETY
     Dosage: HALF DAILY AT NIGHTS
     Route: 065
     Dates: start: 201406
  7. STALEVO [Suspect]
     Active Substance: CARBIDOPA\ENTACAPONE\LEVODOPA
     Dosage: STRENGTH: 75/18.75/200 MG
     Route: 065

REACTIONS (15)
  - Dizziness [Recovered/Resolved]
  - Decreased appetite [Recovered/Resolved]
  - Insomnia [Recovered/Resolved]
  - Stress [Unknown]
  - Malaise [Recovered/Resolved]
  - Headache [Recovered/Resolved]
  - Vomiting [Recovering/Resolving]
  - Salivary hypersecretion [Recovering/Resolving]
  - Incorrect dosage administered [Unknown]
  - Gastritis [Recovering/Resolving]
  - Nausea [Recovered/Resolved]
  - Weight decreased [Recovered/Resolved]
  - Malnutrition [Not Recovered/Not Resolved]
  - Tremor [Not Recovered/Not Resolved]
  - Distractibility [Not Recovered/Not Resolved]

NARRATIVE: CASE EVENT DATE: 2012
